FAERS Safety Report 18502028 (Version 1)
Quarter: 2020Q4

REPORT INFORMATION
  Report Type: Spontaneous
  Country: US (occurrence: US)
  Receive Date: 20201113
  Receipt Date: 20201113
  Transmission Date: 20210114
  Serious: Yes (Death)
  Sender: FDA-Public Use
  Company Number: None

PATIENT
  Age: 58 Year
  Sex: Male

DRUGS (10)
  1. AMLODIPINE 10 MG [Concomitant]
     Active Substance: AMLODIPINE BESYLATE
  2. VALGANCICLOVIR 450 MG [Concomitant]
  3. TACROLIMUS. [Suspect]
     Active Substance: TACROLIMUS
     Indication: RENAL TRANSPLANT
  4. MYCOPHENOLIC ACID. [Concomitant]
     Active Substance: MYCOPHENOLIC ACID
  5. ALLOPURINOL 100 MG [Concomitant]
     Active Substance: ALLOPURINOL
  6. PANTOPRAZOLE 40 MG [Concomitant]
     Active Substance: PANTOPRAZOLE SODIUM
  7. MAG OX 400 MG [Concomitant]
  8. ASPIRIN 81 MG [Concomitant]
     Active Substance: ASPIRIN
  9. PREDNISONE 5 MG [Concomitant]
     Active Substance: PREDNISONE
  10. CARVEDILOL 12.5 MG [Concomitant]
     Active Substance: CARVEDILOL

REACTIONS (1)
  - COVID-19 [None]

NARRATIVE: CASE EVENT DATE: 20201112
